FAERS Safety Report 20523678 (Version 3)
Quarter: 2022Q2

REPORT INFORMATION
  Report Type: Report from Study
  Country: CA (occurrence: CA)
  Receive Date: 20220228
  Receipt Date: 20220401
  Transmission Date: 20220721
  Serious: Yes (Hospitalization, Other)
  Sender: FDA-Public Use
  Company Number: CA-ABBVIE-22K-028-4293405-00

PATIENT
  Sex: Female

DRUGS (2)
  1. RINVOQ [Suspect]
     Active Substance: UPADACITINIB
     Indication: Rheumatoid arthritis
     Route: 048
     Dates: start: 20211109
  2. METHOTREXATE [Concomitant]
     Active Substance: METHOTREXATE
     Indication: Product used for unknown indication

REACTIONS (18)
  - Localised infection [Unknown]
  - Spinal cord infection [Unknown]
  - Back pain [Unknown]
  - Myositis [Unknown]
  - Cardiac failure [Unknown]
  - Post procedural oedema [Unknown]
  - Atrial fibrillation [Unknown]
  - Superficial vein thrombosis [Unknown]
  - COVID-19 [Recovered/Resolved]
  - Osteonecrosis [Unknown]
  - Rheumatoid arthritis [Unknown]
  - Retroperitoneal haematoma [Unknown]
  - Hypertension [Unknown]
  - Bacterial sepsis [Unknown]
  - Immunosuppression [Unknown]
  - Hypotension [Unknown]
  - Dizziness [Unknown]
  - Asthenia [Unknown]

NARRATIVE: CASE EVENT DATE: 20220101
